FAERS Safety Report 5915377-5 (Version None)
Quarter: 2008Q4

REPORT INFORMATION
  Report Type: 
  Country: None (occurrence: None)
  Receive Date: 20081010
  Receipt Date: 20081006
  Transmission Date: 20090506
  Serious: Yes (Hospitalization, Other)
  Sender: FDA-Public Use
  Company Number: PR-ABBOTT-08P-131-0477826-00

PATIENT
  Sex: Female
  Weight: 99.88 kg

DRUGS (10)
  1. HUMIRA [Suspect]
     Indication: CROHN'S DISEASE
     Route: 058
     Dates: start: 20070501, end: 20080301
  2. HUMIRA [Suspect]
     Route: 058
     Dates: start: 20080301, end: 20080701
  3. HUMIRA [Suspect]
     Route: 058
     Dates: end: 20080901
  4. SITAGLIPTIN PHOSPHATE [Concomitant]
     Indication: DIABETES MELLITUS
     Route: 048
  5. GLIPIZIDE [Concomitant]
     Indication: DIABETES MELLITUS
     Route: 048
  6. VERAPAMIL HYDROCHLORIDE [Concomitant]
     Indication: HYPERTENSION
     Route: 048
  7. PREDNISONE TAB [Concomitant]
     Indication: CROHN'S DISEASE
     Route: 048
  8. ALLOPURINOL [Concomitant]
     Indication: CROHN'S DISEASE
     Route: 048
  9. GABAPENTIN [Concomitant]
     Indication: NEUROPATHY PERIPHERAL
     Route: 048
  10. IBANDRONATE SODIUM [Concomitant]
     Indication: OSTEOPOROSIS
     Route: 042

REACTIONS (10)
  - ASTHENIA [None]
  - ASTHMA [None]
  - CROHN'S DISEASE [None]
  - GASTRITIS [None]
  - IMMUNOSUPPRESSION [None]
  - INFLUENZA [None]
  - LOWER RESPIRATORY TRACT INFECTION FUNGAL [None]
  - OEDEMA PERIPHERAL [None]
  - RESPIRATORY TRACT INFECTION BACTERIAL [None]
  - SMALL INTESTINAL OBSTRUCTION [None]
